FAERS Safety Report 19132953 (Version 4)
Quarter: 2021Q4

REPORT INFORMATION
  Report Type: Spontaneous
  Country: AR (occurrence: AR)
  Receive Date: 20210413
  Receipt Date: 20211206
  Transmission Date: 20220303
  Serious: Yes (Hospitalization)
  Sender: FDA-Public Use
  Company Number: AR-BIOMARINAP-AR-2021-135952

PATIENT
  Age: 14 Year
  Sex: Female

DRUGS (1)
  1. BRINEURA [Suspect]
     Active Substance: CERLIPONASE ALFA
     Indication: Neuronal ceroid lipofuscinosis
     Dosage: 300 MILLIGRAM, QOW
     Route: 020
     Dates: start: 20171023

REACTIONS (3)
  - Aqueductal stenosis [Recovering/Resolving]
  - Hydrocephalus [Recovering/Resolving]
  - Cerebral ventricle dilatation [Recovering/Resolving]

NARRATIVE: CASE EVENT DATE: 20210201
